FAERS Safety Report 21893041 (Version 1)
Quarter: 2023Q1

REPORT INFORMATION
  Report Type: Spontaneous
  Country: US (occurrence: US)
  Receive Date: 20230120
  Receipt Date: 20230120
  Transmission Date: 20230418
  Serious: Yes (Other)
  Sender: FDA-Public Use
  Company Number: US-TEVA-2023-US-2846203

PATIENT
  Age: 52 Year
  Sex: Female
  Weight: 83.91 kg

DRUGS (1)
  1. RIZATRIPTAN BENZOATE [Suspect]
     Active Substance: RIZATRIPTAN BENZOATE
     Indication: Migraine
     Dosage: 1 TABLET EVERY 2 HOURS AS NEEDED WITH A MAX OF 2 TABLETS IN 24 HOURS AND A MAX OF 2 DAYS PER WEEK
     Route: 065
     Dates: start: 2022

REACTIONS (3)
  - Throat tightness [Unknown]
  - Oxygen saturation decreased [Unknown]
  - Urticaria [Unknown]

NARRATIVE: CASE EVENT DATE: 20230110
